FAERS Safety Report 11143747 (Version 2)
Quarter: 2015Q2

REPORT INFORMATION
  Report Type: Report from Study
  Country: ZA (occurrence: ZA)
  Receive Date: 20150528
  Receipt Date: 20150622
  Transmission Date: 20150821
  Serious: Yes (Death, Hospitalization)
  Sender: FDA-Public Use
  Company Number: ZA-ROCHE-1584388

PATIENT
  Age: 24 Year
  Sex: Female

DRUGS (1)
  1. MIRCERA [Suspect]
     Active Substance: METHOXY POLYETHYLENE GLYCOL-EPOETIN BETA
     Indication: NEPHROGENIC ANAEMIA
     Route: 058
     Dates: start: 20150430

REACTIONS (5)
  - Confusional state [Unknown]
  - Lung infection [Unknown]
  - Dysuria [Unknown]
  - Death [Fatal]
  - Blood urea increased [Unknown]

NARRATIVE: CASE EVENT DATE: 20150526
